FAERS Safety Report 12292775 (Version 1)
Quarter: 2016Q2

REPORT INFORMATION
  Report Type: Report from Study
  Country: US (occurrence: US)
  Receive Date: 20160421
  Receipt Date: 20160421
  Transmission Date: 20160815
  Serious: No
  Sender: FDA-Public Use
  Company Number: US-AMGEN-USASL2016033704

PATIENT
  Age: 63 Year
  Sex: Female

DRUGS (1)
  1. REPATHA [Suspect]
     Active Substance: EVOLOCUMAB
     Indication: TYPE IIA HYPERLIPIDAEMIA
     Dosage: 140 MG, Q2WK
     Route: 065
     Dates: start: 20160112

REACTIONS (11)
  - Feeling abnormal [Unknown]
  - Asthenopia [Unknown]
  - Amnesia [Unknown]
  - Sinusitis [Recovering/Resolving]
  - Eyelid ptosis [Unknown]
  - Eye disorder [Unknown]
  - Back pain [Recovering/Resolving]
  - Dry eye [Unknown]
  - Cough [Recovering/Resolving]
  - Confusional state [Unknown]
  - Nausea [Recovering/Resolving]

NARRATIVE: CASE EVENT DATE: 2016
